FAERS Safety Report 8119864-3 (Version None)
Quarter: 2011Q4

REPORT INFORMATION
  Report Type: 
  Country: None (occurrence: None)
  Receive Date: 20111227
  Receipt Date: 20111006
  Transmission Date: 20120403
  Serious: No
  Sender: FDA-Public Use
  Company Number: PHEH2011US06014

PATIENT
  Age: 35 Year
  Sex: Female

DRUGS (5)
  1. ASCORBIC ACID [Concomitant]
  2. GILENYA [Suspect]
     Indication: MULTIPLE SCLEROSIS
     Dosage: 0.5 MG, QD, ORAL
     Route: 048
     Dates: start: 20110501
  3. VITAMIN D [Concomitant]
  4. VITAMIN E [Concomitant]
  5. CALCIUM W/MAGNESIUM (CALCIUM , MAGNESIUM) [Concomitant]

REACTIONS (3)
  - LETHARGY [None]
  - FATIGUE [None]
  - SLUGGISHNESS [None]
